FAERS Safety Report 8547633-9 (Version None)
Quarter: 2012Q3

REPORT INFORMATION
  Report Type: 
  Country: None (occurrence: None)
  Receive Date: 20120727
  Receipt Date: 20120425
  Transmission Date: 20120928
  Serious: Yes (Other)
  Sender: FDA-Public Use
  Company Number: US-ASTRAZENECA-2012SE26894

PATIENT
  Age: 42 Year
  Sex: Female

DRUGS (3)
  1. NOVOLOG [Concomitant]
     Indication: DIABETES MELLITUS
  2. SEROQUEL [Suspect]
     Indication: BIPOLAR DISORDER
     Route: 048
  3. LANTUS [Concomitant]
     Indication: DIABETES MELLITUS

REACTIONS (1)
  - WEIGHT INCREASED [None]
